FAERS Safety Report 17809744 (Version 4)
Quarter: 2021Q1

REPORT INFORMATION
  Report Type: Spontaneous
  Country: NL (occurrence: NL)
  Receive Date: 20200520
  Receipt Date: 20210226
  Transmission Date: 20210419
  Serious: Yes (Life-Threatening, Hospitalization)
  Sender: FDA-Public Use
  Company Number: NVSC2020NL137137

PATIENT
  Sex: Female
  Weight: 55 kg

DRUGS (4)
  1. QUETIAPINE. [Suspect]
     Active Substance: QUETIAPINE
     Indication: PRODUCT USED FOR UNKNOWN INDICATION
     Dosage: UNK
     Route: 065
     Dates: start: 20200228
  2. TRACYDAL [Suspect]
     Active Substance: TRANYLCYPROMINE SULFATE
     Indication: PRODUCT USED FOR UNKNOWN INDICATION
     Dosage: 250 MG
     Route: 065
     Dates: start: 20200229
  3. OXAZEPAM. [Suspect]
     Active Substance: OXAZEPAM
     Indication: PRODUCT USED FOR UNKNOWN INDICATION
     Dosage: UNK
     Route: 065
     Dates: start: 20200228
  4. TRACYDAL [Suspect]
     Active Substance: TRANYLCYPROMINE SULFATE
     Dosage: 30 MG MAINTENANCE DOSING
     Route: 065

REACTIONS (19)
  - Hallucination [Unknown]
  - Malaise [Recovering/Resolving]
  - Dizziness [Recovering/Resolving]
  - Hyperhidrosis [Unknown]
  - Rash papular [Unknown]
  - Agitation [Unknown]
  - Bruxism [Recovering/Resolving]
  - Visual impairment [Unknown]
  - Aggression [Unknown]
  - Areflexia [Unknown]
  - Panic reaction [Unknown]
  - Syncope [Recovering/Resolving]
  - Hypertensive crisis [Recovering/Resolving]
  - Facial spasm [Recovering/Resolving]
  - Contraindicated product administered [Unknown]
  - Overdose [Recovering/Resolving]
  - Dyspnoea [Unknown]
  - Muscle tightness [Recovering/Resolving]
  - Anxiety [Unknown]

NARRATIVE: CASE EVENT DATE: 20200228
